FAERS Safety Report 6493501-6 (Version None)
Quarter: 2009Q4

REPORT INFORMATION
  Report Type: 
  Country: None (occurrence: None)
  Receive Date: 20091214
  Receipt Date: 20091208
  Transmission Date: 20100525
  Serious: Yes (Disabling)
  Sender: FDA-Public Use
  Company Number: JP-BAYER-200913821BYL

PATIENT
  Age: 62 Year
  Sex: Male

DRUGS (10)
  1. NEXAVAR [Suspect]
     Indication: HEPATIC NEOPLASM MALIGNANT
     Dosage: UNIT DOSE: 200 MG
     Route: 048
     Dates: start: 20090818, end: 20090821
  2. LIVACT [Concomitant]
     Dosage: UNIT DOSE: 4.15 G
     Route: 048
  3. URSO 250 [Concomitant]
     Dosage: UNIT DOSE: 100 MG
     Route: 048
  4. BIOFERMIN [Concomitant]
     Dosage: FROM BEFORE ADMINISTRATION
     Route: 048
  5. LASIX [Concomitant]
     Dosage: UNIT DOSE: 20 MG
     Route: 048
  6. ALDACTONE [Concomitant]
     Dosage: UNIT DOSE: 2.5 MG
     Route: 048
  7. ZOLOFT [Concomitant]
     Dosage: FROM BEFORE ADMINISTRATION
     Route: 048
  8. OMEPRAZOLE [Concomitant]
     Dosage: UNIT DOSE: 10 MG
     Route: 048
  9. HALCION [Concomitant]
     Dosage: FROM BEFORE ADMINISTRATION
     Route: 048
  10. ROHYPNOL [Concomitant]
     Dosage: UNIT DOSE: 10 MG
     Route: 048

REACTIONS (1)
  - MONOPLEGIA [None]
